FAERS Safety Report 17264023 (Version 1)
Quarter: 2020Q1

REPORT INFORMATION
  Report Type: Spontaneous
  Country: US (occurrence: US)
  Receive Date: 20200113
  Receipt Date: 20200113
  Transmission Date: 20200409
  Serious: No
  Sender: FDA-Public Use
  Company Number: None

PATIENT
  Age: 73 Year
  Sex: Female
  Weight: 36.9 kg

DRUGS (13)
  1. CALCIUM [Concomitant]
     Active Substance: CALCIUM
  2. OXYCODONE [Concomitant]
     Active Substance: OXYCODONE
  3. GABAPENTIN. [Concomitant]
     Active Substance: GABAPENTIN
  4. VITAMIN A AND D [Concomitant]
     Active Substance: LANOLIN\PETROLATUM
  5. AMLODIPINE [Concomitant]
     Active Substance: AMLODIPINE BESYLATE
  6. PUMP FOR PAIN MEDS [Concomitant]
  7. PREGABALIN. [Suspect]
     Active Substance: PREGABALIN
     Indication: NEURALGIA
     Dosage: ?          QUANTITY:2 CAPSULE(S);?
     Route: 048
     Dates: start: 20190817, end: 20190828
  8. ATENOLOL. [Concomitant]
     Active Substance: ATENOLOL
  9. DULCOLAX NOS [Concomitant]
     Active Substance: BISACODYL OR DOCUSATE SODIUM
  10. DIGESTIVE ADVANTAGE DAILY PROBIOTIC [Concomitant]
     Active Substance: LACTOBACILLUS REUTERI
  11. LOSARTAN. [Concomitant]
     Active Substance: LOSARTAN
  12. CRANBERRY. [Concomitant]
     Active Substance: CRANBERRY
  13. VITAMIN B 100 COMPLEX [Concomitant]

REACTIONS (2)
  - Rash [None]
  - Product substitution issue [None]

NARRATIVE: CASE EVENT DATE: 20190821
